FAERS Safety Report 17933749 (Version 1)
Quarter: 2020Q2

REPORT INFORMATION
  Report Type: Spontaneous
  Country: DE (occurrence: DE)
  Receive Date: 20200623
  Receipt Date: 20200623
  Transmission Date: 20200714
  Serious: Yes (Other)
  Sender: FDA-Public Use
  Company Number: NVSC2020DE097156

PATIENT
  Age: 42 Year
  Sex: Male

DRUGS (5)
  1. OFLOXACIN. [Suspect]
     Active Substance: OFLOXACIN
     Dosage: 5 DF, QD
     Route: 061
  2. OFLOXACIN. [Suspect]
     Active Substance: OFLOXACIN
     Indication: DIFFUSE LAMELLAR KERATITIS
     Dosage: 0.3 %, FIVE TIMES A DAY
     Route: 065
  3. ARTIFICIAL TEARS [Concomitant]
     Active Substance: GLYCERIN\HYPROMELLOSES\POLYETHYLENE GLYCOL 400
     Indication: KERATOMILEUSIS
     Dosage: UNK
     Route: 065
  4. DEXAMETHASONE. [Suspect]
     Active Substance: DEXAMETHASONE
     Indication: DIFFUSE LAMELLAR KERATITIS
     Dosage: 0.1 % FIVE TIMES A DAY
     Route: 065
  5. DEXAMETHASONE. [Suspect]
     Active Substance: DEXAMETHASONE
     Indication: KERATOMILEUSIS
     Dosage: 5 DF, QD
     Route: 061

REACTIONS (4)
  - Product use in unapproved indication [Unknown]
  - Drug ineffective [Unknown]
  - Diffuse lamellar keratitis [Recovering/Resolving]
  - Intraocular pressure increased [Unknown]
